FAERS Safety Report 9222221 (Version 2)
Quarter: 2015Q1

REPORT INFORMATION
  Report Type: Spontaneous
  Country: US (occurrence: None)
  Receive Date: 20130408
  Receipt Date: 20150212
  Transmission Date: 20150721
  Serious: Yes (Other)
  Sender: FDA-Public Use
  Company Number: 1303-414

PATIENT
  Age: 47 Year
  Sex: Male

DRUGS (1)
  1. EYLEA [Suspect]
     Active Substance: AFLIBERCEPT
     Indication: AGE-RELATED MACULAR DEGENERATION

REACTIONS (4)
  - Blindness [None]
  - Blindness transient [None]
  - Vitreous floaters [None]
  - Non-infectious endophthalmitis [None]

NARRATIVE: CASE EVENT DATE: 20130219
